FAERS Safety Report 17925322 (Version 2)
Quarter: 2020Q4

REPORT INFORMATION
  Report Type: Other
  Country: CA (occurrence: CA)
  Receive Date: 20200622
  Receipt Date: 20201130
  Transmission Date: 20210113
  Serious: No
  Sender: FDA-Public Use
  Company Number: CA-ROCHE-2618356

PATIENT
  Sex: Female

DRUGS (2)
  1. OCREVUS [Suspect]
     Active Substance: OCRELIZUMAB
     Indication: RELAPSING-REMITTING MULTIPLE SCLEROSIS
     Dosage: DAY 0, 14 THEN 600 MG Q6M
     Route: 042
     Dates: start: 20190404
  2. AMLODIPINE BESYLATE. [Concomitant]
     Active Substance: AMLODIPINE BESYLATE
     Indication: BLOOD PRESSURE MEASUREMENT

REACTIONS (3)
  - Mental disorder [Not Recovered/Not Resolved]
  - Mastitis fungal [Not Recovered/Not Resolved]
  - Miliaria [Unknown]
